FAERS Safety Report 4444704-3 (Version None)
Quarter: 2004Q3

REPORT INFORMATION
  Report Type: 
  Country: None (occurrence: None)
  Receive Date: 20040909
  Receipt Date: 20040831
  Transmission Date: 20050211
  Serious: Yes (Hospitalization)
  Sender: FDA-Public Use
  Company Number: US-AMGEN-US089406

PATIENT
  Sex: Male

DRUGS (3)
  1. ENBREL [Suspect]
     Indication: PSORIATIC ARTHROPATHY
     Route: 058
     Dates: end: 20040101
  2. ENBREL [Suspect]
     Dates: start: 20040701
  3. LACTULOSE [Concomitant]

REACTIONS (4)
  - ANAL FISSURE [None]
  - DUODENAL ULCER [None]
  - HEPATITIS ALCOHOLIC [None]
  - SKIN FISSURES [None]
